FAERS Safety Report 7866795-X (Version None)
Quarter: 2011Q4

REPORT INFORMATION
  Report Type: 
  Country: None (occurrence: None)
  Receive Date: 20111028
  Receipt Date: 20110822
  Transmission Date: 20120403
  Serious: No
  Sender: FDA-Public Use
  Company Number: US-GLAXOSMITHKLINE-A0941857A

PATIENT
  Age: 63 Year
  Sex: Female
  Weight: 72.7 kg

DRUGS (13)
  1. ADVAIR DISKUS 100/50 [Suspect]
     Indication: ASTHMA
     Dosage: 1PUFF TWICE PER DAY
     Route: 055
     Dates: start: 20010101
  2. NEXIUM [Concomitant]
  3. HYDROCHLOROTHIAZIDE [Concomitant]
  4. LEVOTHYROXINE SODIUM [Concomitant]
  5. CLARITIN [Concomitant]
  6. ASCORBIC ACID [Concomitant]
  7. ALBUTEROL [Concomitant]
  8. FOSAMAX [Concomitant]
  9. VITAMIN D [Concomitant]
  10. GLUCOSAMINE + CHONDROITIN [Concomitant]
  11. VITAMIN E [Concomitant]
  12. RANITIDINE [Concomitant]
  13. POTASSIUM CHLORIDE [Concomitant]

REACTIONS (9)
  - NAUSEA [None]
  - PRODUCT QUALITY ISSUE [None]
  - POOR QUALITY SLEEP [None]
  - FEELING ABNORMAL [None]
  - HYPOAESTHESIA [None]
  - FORMICATION [None]
  - TREMOR [None]
  - DYSPNOEA [None]
  - RESTLESSNESS [None]
